FAERS Safety Report 11643650 (Version 1)
Quarter: 2015Q4

REPORT INFORMATION
  Report Type: Spontaneous
  Country: GB (occurrence: GB)
  Receive Date: 20151020
  Receipt Date: 20151020
  Transmission Date: 20160304
  Serious: Yes (Hospitalization)
  Sender: FDA-Public Use
  Company Number: GB-ASTRAZENECA-2015SE98720

PATIENT
  Age: 67 Year
  Sex: Female
  Weight: 82 kg

DRUGS (30)
  1. BUPIVACAINE [Concomitant]
     Active Substance: BUPIVACAINE
  2. ENOXAPARIN [Concomitant]
     Active Substance: ENOXAPARIN
  3. HUMAN INSULATARD [Concomitant]
     Active Substance: INSULIN HUMAN
  4. ONDANSETRON [Concomitant]
     Active Substance: ONDANSETRON
  5. PROPOFOL-LIPURO [Concomitant]
     Active Substance: PROPOFOL
  6. FLUCLOXACILLIN [Concomitant]
     Active Substance: FLUCLOXACILLIN
  7. SALINE ORAL OTC [Concomitant]
     Active Substance: SODIUM CHLORIDE
  8. DAPAGLIFLOZIN [Suspect]
     Active Substance: DAPAGLIFLOZIN
     Indication: TYPE 2 DIABETES MELLITUS
     Route: 048
     Dates: end: 20150930
  9. CYCLIZINE [Concomitant]
     Active Substance: CYCLIZINE
  10. DEXTROSE SALINE PLUS POTASSIUM [Concomitant]
  11. DOCUSATE [Concomitant]
     Active Substance: DOCUSATE
  12. GELOFUSINE [Concomitant]
     Active Substance: GELATIN\SODIUM CHLORIDE
  13. METFORMIN [Concomitant]
     Active Substance: METFORMIN HYDROCHLORIDE
  14. PROCHLORPERAZINE. [Concomitant]
     Active Substance: PROCHLORPERAZINE
  15. PARACETAMOL [Concomitant]
     Active Substance: ACETAMINOPHEN
  16. ZOPICLONE [Concomitant]
     Active Substance: ZOPICLONE
  17. CHLORPHENAMINE [Concomitant]
     Active Substance: CHLORPHENIRAMINE MALEATE
  18. DEXTROSE. [Concomitant]
     Active Substance: DEXTROSE
  19. DIAMORPHINE [Concomitant]
     Active Substance: DIACETYLMORPHINE
  20. GLUCOSAMINE [Concomitant]
     Active Substance: GLUCOSAMINE
  21. TRANEXAMIC ACID. [Concomitant]
     Active Substance: TRANEXAMIC ACID
  22. CODEINE [Concomitant]
     Active Substance: CODEINE
  23. HARTMANN^S SOLUTION [Concomitant]
     Active Substance: CALCIUM CHLORIDE\POTASSIUM CHLORIDE\SODIUM CHLORIDE\SODIUM LACTATE
  24. MORPHINE [Concomitant]
     Active Substance: MORPHINE
  25. SENNA [Concomitant]
     Active Substance: SENNA LEAF\SENNOSIDES\SENNOSIDES A AND B
  26. GENTAMICIN. [Concomitant]
     Active Substance: GENTAMICIN
  27. HUMAN ACTRAPID [Concomitant]
     Active Substance: INSULIN HUMAN
  28. MIDAZOLAM [Concomitant]
     Active Substance: MIDAZOLAM\MIDAZOLAM HYDROCHLORIDE
  29. SANDO-K [Concomitant]
     Active Substance: POTASSIUM BICARBONATE\POTASSIUM CHLORIDE
  30. SIMVASTATIN. [Concomitant]
     Active Substance: SIMVASTATIN

REACTIONS (4)
  - Diabetic ketoacidosis [Recovering/Resolving]
  - Dyspnoea [Unknown]
  - Vomiting [Unknown]
  - Fall [Unknown]

NARRATIVE: CASE EVENT DATE: 20150925
